FAERS Safety Report 22224182 (Version 1)
Quarter: 2023Q2

REPORT INFORMATION
  Report Type: Spontaneous
  Country: US (occurrence: US)
  Receive Date: 20230418
  Receipt Date: 20230418
  Transmission Date: 20230722
  Serious: No
  Sender: FDA-Public Use
  Company Number: US-TRIS PHARMA, INC.-23US010813

PATIENT

DRUGS (6)
  1. ACETAMINOPHEN\HYDROCODONE BITARTRATE [Suspect]
     Active Substance: ACETAMINOPHEN\HYDROCODONE BITARTRATE
     Indication: Pain management
     Dosage: TAKEN 0.5 TO 1 TABLET ORALLY EVERY 4-6 HOURS IF NEEDED
     Route: 048
     Dates: start: 20230328
  2. ACETAMINOPHEN\HYDROCODONE BITARTRATE [Suspect]
     Active Substance: ACETAMINOPHEN\HYDROCODONE BITARTRATE
     Dosage: TAKEN 0.5 TO 1 TABLET ORALLY EVERY 4-6 HOURS IF NEEDED
     Route: 048
  3. ARMOUR THYROID [Concomitant]
     Active Substance: THYROID, PORCINE
     Indication: Product used for unknown indication
     Dosage: 60 MILLIGRAM
  4. LISINOPRIL [Concomitant]
     Active Substance: LISINOPRIL
     Indication: Product used for unknown indication
     Dosage: UNK
  5. COREG [Concomitant]
     Active Substance: CARVEDILOL
     Indication: Product used for unknown indication
     Dosage: UNK
  6. LASIX [Concomitant]
     Active Substance: FUROSEMIDE
     Indication: Product used for unknown indication
     Dosage: UNK, PRN

REACTIONS (10)
  - Alopecia [Not Recovered/Not Resolved]
  - Anorectal discomfort [Not Recovered/Not Resolved]
  - Dry skin [Not Recovered/Not Resolved]
  - Skin burning sensation [Not Recovered/Not Resolved]
  - Product taste abnormal [Not Recovered/Not Resolved]
  - Paraesthesia [Not Recovered/Not Resolved]
  - Wrong technique in product usage process [Unknown]
  - Dyspepsia [Unknown]
  - Abdominal pain upper [Not Recovered/Not Resolved]
  - Drug effect less than expected [Not Recovered/Not Resolved]

NARRATIVE: CASE EVENT DATE: 20230331
